FAERS Safety Report 7170748-7 (Version None)
Quarter: 2010Q4

REPORT INFORMATION
  Report Type: 
  Country: None (occurrence: None)
  Receive Date: 20101203
  Receipt Date: 20101124
  Transmission Date: 20110411
  Serious: Yes (Hospitalization, Other)
  Sender: FDA-Public Use
  Company Number: 2010JP006886

PATIENT
  Age: 58 Year
  Sex: Female

DRUGS (5)
  1. PROGRAF [Suspect]
     Indication: RHEUMATOID ARTHRITIS
     Dosage: 1 MG, UNKNOWN
  2. ALENDRONATE SODIUM [Suspect]
     Indication: OSTEOPOROSIS
     Dosage: 5 MG, UID/QD, ORAL
     Route: 048
     Dates: start: 20020501
  3. METHOTREXATE PER ORAL NOS [Concomitant]
  4. MIZORIBINE FORMULATION UNKNOWN [Concomitant]
  5. PREDNISOLONE [Concomitant]

REACTIONS (10)
  - BONE FRAGMENTATION [None]
  - CELLULITIS [None]
  - INFECTION SUSCEPTIBILITY INCREASED [None]
  - JAW FRACTURE [None]
  - OSTEOMYELITIS [None]
  - OSTEONECROSIS OF JAW [None]
  - PATHOLOGICAL FRACTURE [None]
  - PERICORONITIS [None]
  - POOR PERSONAL HYGIENE [None]
  - TOOTHACHE [None]
